FAERS Safety Report 15397768 (Version 1)
Quarter: 2018Q3

REPORT INFORMATION
  Report Type: Spontaneous
  Country: US (occurrence: US)
  Receive Date: 20180913
  Receipt Date: 20180913
  Transmission Date: 20181010
  Serious: No
  Sender: FDA-Public Use
  Company Number: None

PATIENT
  Age: 53 Year
  Sex: Male

DRUGS (1)
  1. ENBREL [Suspect]
     Active Substance: ETANERCEPT
     Indication: PSORIASIS
     Dosage: INJECT 50MG   SUBCUTANEOUSLY  TWO TIMES A  WEEK   72?96 HOURS APART FOR 3 MONTHS  AS DIRECTED
     Dates: start: 201710

REACTIONS (2)
  - Burning sensation [None]
  - Stent placement [None]
